FAERS Safety Report 19063539 (Version 1)
Quarter: 2021Q1

REPORT INFORMATION
  Report Type: Spontaneous
  Country: US (occurrence: US)
  Receive Date: 20210326
  Receipt Date: 20210326
  Transmission Date: 20210420
  Serious: No
  Sender: FDA-Public Use
  Company Number: US-SA-2021SA100532

PATIENT
  Age: 11 Year
  Sex: Female

DRUGS (2)
  1. DUPIXENT [Suspect]
     Active Substance: DUPILUMAB
     Indication: DERMATITIS ATOPIC
     Dosage: 300 MG, QOW
  2. XYZAL [Concomitant]
     Active Substance: LEVOCETIRIZINE DIHYDROCHLORIDE

REACTIONS (16)
  - Skin exfoliation [Unknown]
  - Alopecia [Unknown]
  - Platelet count increased [Unknown]
  - Skin injury [Unknown]
  - Weight decreased [Unknown]
  - Pruritus [Unknown]
  - Scratch [Unknown]
  - Condition aggravated [Unknown]
  - Dermatitis atopic [Unknown]
  - Product use issue [Unknown]
  - Skin atrophy [Unknown]
  - White blood cell count increased [Unknown]
  - Trichorrhexis [Unknown]
  - Rash [Unknown]
  - Swelling face [Unknown]
  - Haematocrit increased [Unknown]
